FAERS Safety Report 10184768 (Version 2)
Quarter: 2014Q2

REPORT INFORMATION
  Report Type: Report from Study
  Country: DE (occurrence: DE)
  Receive Date: 20140521
  Receipt Date: 20140521
  Transmission Date: 20141212
  Serious: Yes (Other)
  Sender: FDA-Public Use
  Company Number: PHHY2012DE006316

PATIENT
  Sex: Female

DRUGS (1)
  1. EXTAVIA [Suspect]
     Indication: MULTIPLE SCLEROSIS
     Dosage: 1 ML, QOD
     Route: 058
     Dates: start: 20111101, end: 20130901

REACTIONS (4)
  - Upper limb fracture [Unknown]
  - Impaired healing [Unknown]
  - Infection [Unknown]
  - Injection site erythema [Recovering/Resolving]
